FAERS Safety Report 6508344-4 (Version None)
Quarter: 2009Q4

REPORT INFORMATION
  Report Type: 
  Country: None (occurrence: None)
  Receive Date: 20091221
  Receipt Date: 20090217
  Transmission Date: 20100525
  Serious: No
  Sender: FDA-Public Use
  Company Number: US-ASTRAZENECA-2004UW12324

PATIENT
  Age: 68 Year
  Sex: Female
  Weight: 63.5 kg

DRUGS (9)
  1. CRESTOR [Suspect]
     Indication: BLOOD CHOLESTEROL INCREASED
     Route: 048
     Dates: start: 20040501
  2. CRESTOR [Suspect]
     Dosage: 5 MG
     Route: 048
     Dates: start: 20090101
  3. SYNTHROID [Concomitant]
  4. LANOXIN [Concomitant]
  5. ADVIL/MOTRIN [Concomitant]
  6. TAMBOCOR [Concomitant]
  7. TOPROL-XL [Concomitant]
  8. VITAMIN E [Concomitant]
  9. CALTRATE  D [Concomitant]

REACTIONS (3)
  - MYALGIA [None]
  - OSTEOARTHRITIS [None]
  - TACHYCARDIA [None]
